FAERS Safety Report 16331099 (Version 1)
Quarter: 2019Q2

REPORT INFORMATION
  Report Type: Spontaneous
  Country: US (occurrence: US)
  Receive Date: 20190517
  Receipt Date: 20190517
  Transmission Date: 20190711
  Serious: Yes (Hospitalization, Disabling)
  Sender: FDA-Public Use
  Company Number: None

PATIENT
  Age: 38 Year
  Sex: Female
  Weight: 78.75 kg

DRUGS (12)
  1. WELLBUTRIN [Concomitant]
     Active Substance: BUPROPION HYDROCHLORIDE
  2. ENTYVIO [Suspect]
     Active Substance: VEDOLIZUMAB
     Indication: COLITIS ULCERATIVE
     Dates: start: 20190311, end: 20190329
  3. TRAMADOL. [Concomitant]
     Active Substance: TRAMADOL
  4. CBD OIL [Concomitant]
     Active Substance: CANNABIDIOL\HERBALS
  5. SYNTHROID [Concomitant]
     Active Substance: LEVOTHYROXINE SODIUM
  6. NASONEX [Concomitant]
     Active Substance: MOMETASONE FUROATE
  7. ENTYVIO [Suspect]
     Active Substance: VEDOLIZUMAB
     Indication: CROHN^S DISEASE
     Dates: start: 20190311, end: 20190329
  8. CYTOMEL [Concomitant]
     Active Substance: LIOTHYRONINE SODIUM
  9. ALLEGRA [Concomitant]
     Active Substance: FEXOFENADINE HYDROCHLORIDE
  10. PREDNISONE. [Concomitant]
     Active Substance: PREDNISONE
  11. TYLENOL [Concomitant]
     Active Substance: ACETAMINOPHEN
  12. COLLAGEN PEPTIDES [Concomitant]

REACTIONS (9)
  - Arthritis [None]
  - Pancreatitis [None]
  - Arthralgia [None]
  - Mobility decreased [None]
  - Alopecia [None]
  - Peripheral swelling [None]
  - Pain in extremity [None]
  - Soft tissue disorder [None]
  - Gait disturbance [None]

NARRATIVE: CASE EVENT DATE: 20190401
